FAERS Safety Report 18105276 (Version 1)
Quarter: 2020Q3

REPORT INFORMATION
  Report Type: Spontaneous
  Country: US (occurrence: US)
  Receive Date: 20200804
  Receipt Date: 20200804
  Transmission Date: 20201103
  Serious: Yes (Death, Other)
  Sender: FDA-Public Use
  Company Number: US-AMGEN-USASP2020123778

PATIENT
  Age: 43 Year

DRUGS (1)
  1. BEVACIZUMAB. [Suspect]
     Active Substance: BEVACIZUMAB
     Indication: ASTROCYTOMA
     Dosage: UNK
     Route: 065

REACTIONS (2)
  - Astrocytoma, low grade [Fatal]
  - Off label use [Unknown]
